FAERS Safety Report 14922313 (Version 1)
Quarter: 2018Q2

REPORT INFORMATION
  Report Type: Spontaneous
  Country: US (occurrence: US)
  Receive Date: 20180502
  Receipt Date: 20180502
  Transmission Date: 20180711
  Serious: Yes (Other)
  Sender: FDA-Public Use
  Company Number: None

PATIENT
  Age: 64 Year
  Sex: Male
  Weight: 103.5 kg

DRUGS (13)
  1. FLUOXETINE [Concomitant]
     Active Substance: FLUOXETINE HYDROCHLORIDE
  2. FLONASE [Concomitant]
     Active Substance: FLUTICASONE PROPIONATE
  3. PRAVASTATIN. [Concomitant]
     Active Substance: PRAVASTATIN
  4. AFRIN [Concomitant]
     Active Substance: OXYMETAZOLINE
  5. CHLORTRIMETON [Concomitant]
     Active Substance: CHLORPHENIRAMINE MALEATE
  6. CLARITIN [Concomitant]
     Active Substance: LORATADINE
  7. CORTISONE [Concomitant]
     Active Substance: CORTISONE\HYDROCORTISONE
  8. JANUVIA [Suspect]
     Active Substance: SITAGLIPTIN PHOSPHATE
     Indication: BLOOD GLUCOSE INCREASED
     Dosage: ?          QUANTITY:30 TABLET(S);?
     Route: 048
     Dates: start: 20180210, end: 20180420
  9. NORVASC [Concomitant]
     Active Substance: AMLODIPINE BESYLATE
  10. BABY ASPIRIN [Concomitant]
     Active Substance: ASPIRIN
  11. HCTZ [Concomitant]
     Active Substance: HYDROCHLOROTHIAZIDE
  12. PREVECID [Concomitant]
  13. RANITIDINE. [Concomitant]
     Active Substance: RANITIDINE

REACTIONS (2)
  - Fear [None]
  - Dyspnoea [None]

NARRATIVE: CASE EVENT DATE: 20180420
